FAERS Safety Report 6704322-0 (Version None)
Quarter: 2010Q2

REPORT INFORMATION
  Report Type: 
  Country: None (occurrence: None)
  Receive Date: 20100430
  Receipt Date: 20100420
  Transmission Date: 20101027
  Serious: Yes (Death)
  Sender: FDA-Public Use
  Company Number: US-JNJFOC-20100407445

PATIENT
  Age: 64 Year
  Sex: Female

DRUGS (6)
  1. FENTANYL [Suspect]
     Indication: DRUG USE FOR UNKNOWN INDICATION
     Route: 065
  2. DIPHENHYDRAMINE [Suspect]
     Indication: DRUG USE FOR UNKNOWN INDICATION
     Route: 065
  3. FLUOXETINE [Suspect]
     Indication: DRUG USE FOR UNKNOWN INDICATION
     Route: 065
  4. CHLORDIAZEPOXIDE [Concomitant]
     Route: 065
  5. NORDIAZEPAM [Concomitant]
     Route: 065
  6. OLANZAPINE [Concomitant]
     Route: 065

REACTIONS (1)
  - DRUG TOXICITY [None]
